FAERS Safety Report 4360328-0 (Version None)
Quarter: 2004Q2

REPORT INFORMATION
  Report Type: 
  Country: None (occurrence: None)
  Receive Date: 20040514
  Receipt Date: 20040504
  Transmission Date: 20050107
  Serious: Yes (Other)
  Sender: FDA-Public Use
  Company Number: US-JNJFOC-20040500772

PATIENT
  Sex: Male

DRUGS (3)
  1. ULTRAM [Suspect]
     Dosage: 250 MG, ORAL
     Route: 048
  2. PROPOXYPHENE HCL [Concomitant]
  3. PAROXETINE HCL [Concomitant]

REACTIONS (1)
  - DEATH [None]
